FAERS Safety Report 15305442 (Version 1)
Quarter: 2018Q4

REPORT INFORMATION
  Report Type: Spontaneous
  Country: DK (occurrence: DK)
  Receive Date: 20180822
  Receipt Date: 20180822
  Transmission Date: 20190204
  Serious: Yes (Life-Threatening, Hospitalization)
  Sender: FDA-Public Use
  Company Number: DK-TEVA-2018-DK-945354

PATIENT
  Age: 65 Year
  Sex: Female

DRUGS (1)
  1. DICLOXACILLIN ^ACTAVIS^ [Suspect]
     Active Substance: DICLOXACILLIN
     Indication: ERYSIPELAS
     Dosage: 3000 MILLIGRAM DAILY; STYRKE: 500 MG.
     Route: 048
     Dates: start: 20180613, end: 20180621

REACTIONS (8)
  - Haemodialysis [Recovered/Resolved]
  - Acute kidney injury [Unknown]
  - Eosinophilia [Unknown]
  - Haematuria [Unknown]
  - Blood creatine increased [Unknown]
  - C-reactive protein increased [Unknown]
  - Polyuria [Recovering/Resolving]
  - Tubulointerstitial nephritis [Unknown]

NARRATIVE: CASE EVENT DATE: 2018
